FAERS Safety Report 17117900 (Version 1)
Quarter: 2019Q4

REPORT INFORMATION
  Report Type: Spontaneous
  Country: US (occurrence: US)
  Receive Date: 20191205
  Receipt Date: 20191205
  Transmission Date: 20200122
  Serious: Yes (Hospitalization)
  Sender: FDA-Public Use
  Company Number: US-VERTEX PHARMACEUTICALS-2019-011989

PATIENT
  Age: 4 Year
  Sex: Male

DRUGS (1)
  1. KALYDECO [Suspect]
     Active Substance: IVACAFTOR
     Indication: CYSTIC FIBROSIS
     Dosage: 1 DOSAGE FORM (50 MG GRANULES), BID
     Route: 048
     Dates: start: 20180124

REACTIONS (3)
  - Gastritis erosive [Recovering/Resolving]
  - Epigastric discomfort [Recovering/Resolving]
  - Foreign body in gastrointestinal tract [Recovering/Resolving]

NARRATIVE: CASE EVENT DATE: 20191111
